FAERS Safety Report 19245272 (Version 3)
Quarter: 2021Q4

REPORT INFORMATION
  Report Type: Spontaneous
  Country: ES (occurrence: ES)
  Receive Date: 20210512
  Receipt Date: 20211209
  Transmission Date: 20220303
  Serious: Yes (Hospitalization, Other)
  Sender: FDA-Public Use
  Company Number: ES-MERCK HEALTHCARE KGAA-9233661

PATIENT
  Age: 57 Year
  Sex: Male
  Weight: 81 kg

DRUGS (10)
  1. OXALIPLATIN [Suspect]
     Active Substance: OXALIPLATIN
     Indication: Oesophageal carcinoma
     Dosage: 63.8 MILLIGRAM, CYCLICAL, (ONCE EVERY 2 WEEKS)
     Route: 042
     Dates: start: 20201014
  2. OXALIPLATIN [Suspect]
     Active Substance: OXALIPLATIN
     Indication: Gastrooesophageal cancer
     Dosage: 63.8 MILLIGRAM, CYCLICAL, (ONCE EVERY 2 WEEKS)
     Route: 042
     Dates: start: 20210329
  3. FLUOROURACIL [Suspect]
     Active Substance: FLUOROURACIL
     Indication: Oesophageal carcinoma
     Dosage: 1950 MILLIGRAM, CYCLICAL, (ONCE EVERY 2 WEEKS)
     Route: 042
     Dates: start: 20201014
  4. FLUOROURACIL [Suspect]
     Active Substance: FLUOROURACIL
     Indication: Gastrooesophageal cancer
     Dosage: 1950 MILLIGRAM, CYCLICAL, (ONCE EVERY 2 WEEKS)
     Route: 042
     Dates: start: 20210329
  5. AVELUMAB [Concomitant]
     Active Substance: AVELUMAB
     Indication: Oesophageal carcinoma
     Dosage: 710 MILLIGRAM, CYCLICAL, (ONCE EVERY 2 WEEKS)
     Route: 042
     Dates: start: 20201014
  6. AVELUMAB [Concomitant]
     Active Substance: AVELUMAB
     Indication: Gastrooesophageal cancer
     Dosage: 710 MILLIGRAM, CYCLICAL,(ONCE EVERY 2 WEEKS)
     Route: 042
     Dates: start: 20210329
  7. LEUCOVORIN CALCIUM [Concomitant]
     Active Substance: LEUCOVORIN CALCIUM
     Indication: Oesophageal carcinoma
     Dosage: 158 MILLIGRAM, CYCLICAL,ONCE EVERY 2 WEEKS)
     Route: 042
     Dates: start: 20201014
  8. LEUCOVORIN CALCIUM [Concomitant]
     Active Substance: LEUCOVORIN CALCIUM
     Indication: Gastrooesophageal cancer
     Dosage: 158 MILLIGRAM, CYCLICAL,ONCE EVERY 2 WEEKS)
     Route: 042
     Dates: start: 20210329
  9. DOCETAXEL [Concomitant]
     Active Substance: DOCETAXEL
     Indication: Oesophageal carcinoma
     Dosage: 37.5 MILLIGRAM, CYCLICAL,(ONCE EVERY 2 WEEK)
     Route: 042
     Dates: start: 20211014
  10. DOCETAXEL [Concomitant]
     Active Substance: DOCETAXEL
     Indication: Gastrooesophageal cancer
     Dosage: 37.5 MILLIGRAM, CYCLICAL, (ONCE EVERY 2 WEEK)
     Route: 042
     Dates: start: 20210329

REACTIONS (1)
  - Intestinal obstruction [Recovered/Resolved]

NARRATIVE: CASE EVENT DATE: 20210417
